FAERS Safety Report 7364440-3 (Version None)
Quarter: 2011Q1

REPORT INFORMATION
  Report Type: 
  Country: None (occurrence: None)
  Receive Date: 20110321
  Receipt Date: 20110311
  Transmission Date: 20110831
  Serious: Yes (Other)
  Sender: FDA-Public Use
  Company Number: CA-ASTRAZENECA-2011SE07497

PATIENT
  Age: 50 Year
  Sex: Female

DRUGS (6)
  1. NAPROSYN [Concomitant]
     Route: 048
  2. METFORMIN HYDROCHLORIDE [Concomitant]
     Route: 048
  3. CARBAMAZEPINE [Concomitant]
     Route: 048
  4. NOVO-BUPROPION SR [Concomitant]
     Route: 048
  5. CRESTOR [Suspect]
     Route: 048
  6. SYNTHROID [Concomitant]
     Route: 048

REACTIONS (2)
  - BLOOD CREATINE PHOSPHOKINASE INCREASED [None]
  - BACK PAIN [None]
